FAERS Safety Report 12039564 (Version 1)
Quarter: 2016Q1

REPORT INFORMATION
  Report Type: Spontaneous
  Country: US (occurrence: None)
  Receive Date: 20160205
  Receipt Date: 20160205
  Transmission Date: 20160526
  Serious: No
  Sender: FDA-Public Use
  Company Number: None

PATIENT
  Age: 64 Year
  Sex: Male
  Weight: 99.2 kg

DRUGS (2)
  1. IDARUCIZUMAB 5 G BOEHRINGER INGLEHEIM [Suspect]
     Active Substance: IDARUCIZUMAB
     Indication: HAEMORRHAGIC STROKE
     Route: 042
     Dates: start: 20160129, end: 20160129
  2. DABIGATRAN [Concomitant]
     Active Substance: DABIGATRAN

REACTIONS (3)
  - Vasospasm [None]
  - Arterial occlusive disease [None]
  - Peripheral artery thrombosis [None]

NARRATIVE: CASE EVENT DATE: 20160202
